FAERS Safety Report 6104791-3 (Version None)
Quarter: 2009Q1

REPORT INFORMATION
  Report Type: 
  Country: None (occurrence: None)
  Receive Date: 20090306
  Receipt Date: 20090225
  Transmission Date: 20090719
  Serious: Yes (Other)
  Sender: FDA-Public Use
  Company Number: PHHY2009GB01097

PATIENT
  Sex: Male

DRUGS (6)
  1. CLOZARIL [Suspect]
     Indication: SCHIZOPHRENIA
     Dosage: 450 MG DAILY
     Route: 048
     Dates: start: 20080416
  2. CLOZARIL [Suspect]
     Dosage: 400 MG DAILY
     Route: 048
  3. CLOZARIL [Suspect]
     Dosage: 300 MG
     Route: 048
     Dates: start: 20090223
  4. VENLAFAXINE XL [Concomitant]
     Dosage: 225 MG
     Route: 048
  5. LITHIUM CARBONATE [Concomitant]
     Dosage: 1200 MG
     Route: 048
  6. ARIPIPRAZOLE [Concomitant]
     Dosage: 10 MG
     Route: 048
     Dates: start: 20090223

REACTIONS (2)
  - OBESITY [None]
  - SEDATION [None]
